FAERS Safety Report 26152923 (Version 1)
Quarter: 2025Q4

REPORT INFORMATION
  Report Type: Spontaneous
  Country: US (occurrence: US)
  Receive Date: 20251214
  Receipt Date: 20251214
  Transmission Date: 20260118
  Serious: No
  Sender: ABBVIE
  Company Number: US-ABBVIE-6585465

PATIENT
  Age: 56 Year
  Sex: Female
  Weight: 70.306 kg

DRUGS (12)
  1. SKYRIZI [Suspect]
     Active Substance: RISANKIZUMAB-RZAA
     Indication: Crohn^s disease
     Dosage: FORM STRENGTH: 360 MILLIGRAM
     Route: 058
     Dates: start: 20251210
  2. VITAMIN B12 [Concomitant]
     Active Substance: CYANOCOBALAMIN
     Indication: Crohn^s disease
  3. POTASSIUM [Concomitant]
     Active Substance: POTASSIUM
     Indication: Crohn^s disease
  4. VITAMIN D3 [Concomitant]
     Active Substance: CHOLECALCIFEROL
     Indication: Crohn^s disease
  5. MIDODRINE [Concomitant]
     Active Substance: MIDODRINE
     Indication: Hypertension
  6. DICYCLOMINE [Concomitant]
     Active Substance: DICYCLOMINE HYDROCHLORIDE
     Indication: Crohn^s disease
  7. SYNTHROID [Concomitant]
     Active Substance: LEVOTHYROXINE SODIUM
     Indication: Hypothyroidism
  8. LINZESS [Concomitant]
     Active Substance: LINACLOTIDE
     Indication: Crohn^s disease
  9. FOLIC ACID [Concomitant]
     Active Substance: FOLIC ACID
     Indication: Crohn^s disease
  10. PAXIL [Concomitant]
     Active Substance: PAROXETINE HYDROCHLORIDE
     Indication: Anxiety
  11. CALCIUM [Concomitant]
     Active Substance: CALCIUM
     Indication: Crohn^s disease
  12. SKYRIZI [Suspect]
     Active Substance: RISANKIZUMAB-RZAA
     Indication: Crohn^s disease
     Dosage: FORM STRENGTH: 600 MILLIGRAM
     Route: 042
     Dates: start: 202509, end: 202511

REACTIONS (3)
  - Injection site urticaria [Not Recovered/Not Resolved]
  - Injection site pain [Recovered/Resolved]
  - Device issue [Not Recovered/Not Resolved]

NARRATIVE: CASE EVENT DATE: 20251210
